FAERS Safety Report 11988806 (Version 2)
Quarter: 2016Q1

REPORT INFORMATION
  Report Type: Spontaneous
  Country: US (occurrence: US)
  Receive Date: 20160202
  Receipt Date: 20160202
  Transmission Date: 20160526
  Serious: No
  Sender: FDA-Public Use
  Company Number: US-UCBSA-2014018438

PATIENT
  Sex: Male

DRUGS (1)
  1. KU-METHYLPHENIDATE HYDROCHLORIDE [Suspect]
     Active Substance: METHYLPHENIDATE HYDROCHLORIDE
     Indication: PRODUCT USED FOR UNKNOWN INDICATION
     Dosage: POTENCY: 27 MG; UNKNOWN DOSE

REACTIONS (4)
  - Dry mouth [Unknown]
  - Abdominal discomfort [Unknown]
  - Abnormal behaviour [Unknown]
  - Headache [Unknown]
